FAERS Safety Report 17444142 (Version 1)
Quarter: 2020Q1

REPORT INFORMATION
  Report Type: Spontaneous
  Country: IT (occurrence: IT)
  Receive Date: 20200221
  Receipt Date: 20200221
  Transmission Date: 20200409
  Serious: Yes (Other)
  Sender: FDA-Public Use
  Company Number: IT-SA-2020SA043393

PATIENT
  Sex: Female

DRUGS (1)
  1. KEVZARA [Suspect]
     Active Substance: SARILUMAB

REACTIONS (3)
  - Lupus-like syndrome [Unknown]
  - Butterfly rash [Unknown]
  - Skin discolouration [Unknown]
